FAERS Safety Report 7166229-7 (Version None)
Quarter: 2010Q4

REPORT INFORMATION
  Report Type: 
  Country: None (occurrence: None)
  Receive Date: 20101216
  Receipt Date: 20101208
  Transmission Date: 20110411
  Serious: Yes (Hospitalization)
  Sender: FDA-Public Use
  Company Number: NL-BAXTER-2010BH026681

PATIENT
  Age: 25 Year
  Sex: Male

DRUGS (4)
  1. GAMMAGARD LIQUID [Suspect]
     Indication: PRODUCT USED FOR UNKNOWN INDICATION
     Route: 042
     Dates: start: 20100324
  2. GAMMAGARD LIQUID [Suspect]
     Route: 042
     Dates: start: 20100929, end: 20100929
  3. GAMMAGARD LIQUID [Suspect]
     Route: 042
     Dates: start: 20100929, end: 20100929
  4. GAMMAGARD LIQUID [Suspect]
     Route: 042
     Dates: start: 20100929, end: 20100929

REACTIONS (2)
  - CYSTITIS [None]
  - DIZZINESS [None]
